FAERS Safety Report 4546947-7 (Version None)
Quarter: 2005Q1

REPORT INFORMATION
  Report Type: 
  Country: None (occurrence: None)
  Receive Date: 20050105
  Receipt Date: 20041222
  Transmission Date: 20050727
  Serious: No
  Sender: FDA-Public Use
  Company Number: 9551

PATIENT
  Age: 24 Year
  Sex: Male

DRUGS (4)
  1. METHOTREXATE [Suspect]
     Indication: LEUKAEMIA
     Dosage: 2590 MG FREQ, IV
     Route: 042
     Dates: start: 20041221, end: 20041221
  2. DECADRON [Concomitant]
  3. ANZEMET [Concomitant]
  4. VINCRISTINE [Concomitant]

REACTIONS (2)
  - FLUSHING [None]
  - THROAT IRRITATION [None]
